FAERS Safety Report 7967506-X (Version None)
Quarter: 2011Q4

REPORT INFORMATION
  Report Type: 
  Country: None (occurrence: None)
  Receive Date: 20111209
  Receipt Date: 20110310
  Transmission Date: 20120403
  Serious: No
  Sender: FDA-Public Use
  Company Number: US-GLAXOSMITHKLINE-B0705673A

PATIENT
  Sex: Male
  Weight: 125.5 kg

DRUGS (16)
  1. LOTREL [Concomitant]
  2. NEURONTIN [Concomitant]
  3. CYMBALTA [Concomitant]
  4. AVANDIA [Suspect]
     Indication: DIABETES MELLITUS
     Dosage: 4MG PER DAY
     Route: 048
  5. BYETTA [Concomitant]
  6. MS CONTIN [Concomitant]
  7. AVANDAMET [Suspect]
     Indication: DIABETES MELLITUS
     Route: 048
     Dates: end: 20090101
  8. AVANDARYL [Suspect]
     Indication: DIABETES MELLITUS
     Route: 048
     Dates: start: 20060201, end: 20080101
  9. LIPITOR [Concomitant]
  10. METFORMIN HCL [Concomitant]
  11. AMBIEN [Concomitant]
  12. TOPAMAX [Concomitant]
  13. CLONAZEPAM [Concomitant]
  14. INSULIN [Concomitant]
  15. TRICOR [Concomitant]
  16. ASPIRIN [Concomitant]

REACTIONS (1)
  - CARDIOVASCULAR DISORDER [None]
